FAERS Safety Report 19230287 (Version 1)
Quarter: 2021Q2

REPORT INFORMATION
  Report Type: Spontaneous
  Country: US (occurrence: US)
  Receive Date: 20210506
  Receipt Date: 20210506
  Transmission Date: 20210717
  Serious: No
  Sender: FDA-Public Use
  Company Number: US-SA-2021SA149149

PATIENT
  Age: 58 Year
  Sex: Male

DRUGS (2)
  1. COVID?19 VACCINE NOS. [Concomitant]
     Active Substance: COVID-19 VACCINE NOS
  2. DUPIXENT [Suspect]
     Active Substance: DUPILUMAB
     Indication: DERMATITIS ATOPIC
     Dosage: UNK
     Route: 058
     Dates: start: 20200417

REACTIONS (4)
  - Intentional dose omission [Unknown]
  - Therapeutic response decreased [Unknown]
  - Rebound atopic dermatitis [Unknown]
  - Urticaria [Unknown]
